FAERS Safety Report 6342051-6 (Version None)
Quarter: 2009Q3

REPORT INFORMATION
  Report Type: 
  Country: None (occurrence: None)
  Receive Date: 20090903
  Receipt Date: 20090824
  Transmission Date: 20100115
  Serious: Yes (Hospitalization)
  Sender: FDA-Public Use
  Company Number: 2009010030

PATIENT
  Age: 68 Year
  Sex: Male
  Weight: 92 kg

DRUGS (7)
  1. TREANDA [Suspect]
     Indication: B-CELL LYMPHOMA
     Dosage: 180 MG, INTRAVENOUS
     Route: 042
     Dates: start: 20090806
  2. RITUXIMAB (RITUXIMAB) [Concomitant]
  3. AMLODIPINE [Concomitant]
  4. BANAZEPRIL (BENAZEPRIL) [Concomitant]
  5. PANTOPRAZOLE SODIUM [Concomitant]
  6. IBUPROFEN [Concomitant]
  7. MUSARIL (TETRAZEPAM) [Concomitant]

REACTIONS (5)
  - BLOOD CREATININE INCREASED [None]
  - BLOOD LACTATE DEHYDROGENASE INCREASED [None]
  - C-REACTIVE PROTEIN INCREASED [None]
  - GENERAL PHYSICAL HEALTH DETERIORATION [None]
  - PAIN IN EXTREMITY [None]
